FAERS Safety Report 5989131-2 (Version None)
Quarter: 2008Q4

REPORT INFORMATION
  Report Type: 
  Country: None (occurrence: None)
  Receive Date: 20081210
  Receipt Date: 20081201
  Transmission Date: 20090506
  Serious: Yes (Life-Threatening)
  Sender: FDA-Public Use
  Company Number: FR-JNJFOC-20071003255

PATIENT
  Sex: Male

DRUGS (5)
  1. REMINYL [Suspect]
     Indication: DEMENTIA ALZHEIMER'S TYPE
     Route: 048
  2. ENALAPRIL MALEATE [Concomitant]
     Indication: HYPERTENSION
  3. EBIXA [Concomitant]
     Indication: DEMENTIA ALZHEIMER'S TYPE
  4. MAGNESIUM SULFATE [Concomitant]
     Route: 048
  5. MEPROBAMATE [Concomitant]
     Route: 048

REACTIONS (4)
  - ATRIAL FIBRILLATION [None]
  - ATRIOVENTRICULAR BLOCK COMPLETE [None]
  - BUNDLE BRANCH BLOCK LEFT [None]
  - NEOPLASM [None]
